FAERS Safety Report 15789645 (Version 2)
Quarter: 2019Q1

REPORT INFORMATION
  Report Type: Spontaneous
  Country: US (occurrence: US)
  Receive Date: 20190104
  Receipt Date: 20190307
  Transmission Date: 20190417
  Serious: No
  Sender: FDA-Public Use
  Company Number: US-ASTRAZENECA-2018SF64270

PATIENT
  Sex: Male
  Weight: 74.8 kg

DRUGS (2)
  1. SYMBICORT [Suspect]
     Active Substance: BUDESONIDE\FORMOTEROL FUMARATE DIHYDRATE
     Indication: CHRONIC OBSTRUCTIVE PULMONARY DISEASE
     Dosage: 160/4.5MCG, TWO INHALATIONS IN THE AM AND PM
     Route: 055
  2. OXYGEN. [Concomitant]
     Active Substance: OXYGEN
     Route: 055

REACTIONS (3)
  - Device issue [Recovered/Resolved]
  - Dyspnoea [Recovered/Resolved]
  - Intentional device misuse [Unknown]
